FAERS Safety Report 8193206-X (Version None)
Quarter: 2012Q1

REPORT INFORMATION
  Report Type: 
  Country: None (occurrence: None)
  Receive Date: 20120223
  Receipt Date: 20110128
  Transmission Date: 20120608
  Serious: Yes (Disabling)
  Sender: FDA-Public Use
  Company Number: WAES 0510USA04888

PATIENT
  Age: 43 Year
  Sex: Male

DRUGS (2)
  1. PROSCAR [Suspect]
     Indication: ANDROGENETIC ALOPECIA
     Dosage: DAILY/PO
     Route: 048
     Dates: start: 20100501, end: 20100901
  2. PROPECIA [Suspect]
     Indication: ALOPECIA
     Dosage: 1 MG;Q3D;PO
     Route: 048
     Dates: start: 20040501, end: 20070101

REACTIONS (4)
  - INTENTIONAL DRUG MISUSE [None]
  - ERECTILE DYSFUNCTION [None]
  - INAPPROPRIATE SCHEDULE OF DRUG ADMINISTRATION [None]
  - MALE SEXUAL DYSFUNCTION [None]
